FAERS Safety Report 19835059 (Version 5)
Quarter: 2022Q1

REPORT INFORMATION
  Report Type: Report from Study
  Country: US (occurrence: None)
  Receive Date: 20210916
  Receipt Date: 20220310
  Transmission Date: 20220423
  Serious: Yes (Death, Hospitalization, Other)
  Sender: FDA-Public Use
  Company Number: US-ROCHE-2907431

PATIENT
  Age: 71 Year
  Sex: Female
  Weight: 123.7 kg

DRUGS (3)
  1. VENETOCLAX [Suspect]
     Active Substance: VENETOCLAX
     Indication: Chronic lymphocytic leukaemia
     Dosage: DAYS 1-7 CYCLE 3?LAST ADMINISTERED: 16/AUG/2021
     Route: 048
  2. OBINUTUZUMAB [Suspect]
     Active Substance: OBINUTUZUMAB
     Indication: Chronic lymphocytic leukaemia
     Dosage: ON C1D1?LAST ADMINISTERED: 20/JUL/2021
     Route: 042
     Dates: start: 20210301
  3. IBRUTINIB [Suspect]
     Active Substance: IBRUTINIB
     Indication: Chronic lymphocytic leukaemia
     Dosage: LAST ADMINISTERED: 16/AUG/2021
     Route: 048
     Dates: start: 20210301

REACTIONS (6)
  - Acute respiratory failure [Not Recovered/Not Resolved]
  - White blood cell count decreased [Recovered/Resolved]
  - Hypoxia [Not Recovered/Not Resolved]
  - COVID-19 pneumonia [Not Recovered/Not Resolved]
  - COVID-19 [Fatal]
  - Lymphocyte count decreased [Recovered/Resolved]

NARRATIVE: CASE EVENT DATE: 20210816
